FAERS Safety Report 8956790 (Version 1)
Quarter: 2012Q4

REPORT INFORMATION
  Report Type: Spontaneous
  Country: US (occurrence: None)
  Receive Date: 20121130
  Receipt Date: 20121130
  Transmission Date: 20130627
  Serious: Yes (Other)
  Sender: FDA-Public Use
  Company Number: 2012AP004027

PATIENT
  Sex: Female

DRUGS (2)
  1. ALENDRONATE SODIUM TABLETS [Suspect]
     Indication: DRUG USE FOR UNKNOWN INDICATION
     Dates: start: 200809, end: 201101
  2. ALENDRONATE SODIUM TABLETS [Suspect]
     Dates: start: 2000, end: 200809

REACTIONS (6)
  - Injury [None]
  - Femur fracture [None]
  - Anxiety [None]
  - Low turnover osteopathy [None]
  - Pain [None]
  - Emotional distress [None]
